FAERS Safety Report 16545247 (Version 1)
Quarter: 2019Q3

REPORT INFORMATION
  Report Type: Spontaneous
  Country: US (occurrence: US)
  Receive Date: 20190528
  Receipt Date: 20190528
  Transmission Date: 20191004
  Serious: No
  Sender: FDA-Public Use
  Company Number: None

PATIENT
  Age: 73 Year
  Sex: Male

DRUGS (1)
  1. ODOMZO [Suspect]
     Active Substance: SONIDEGIB
     Indication: BASAL CELL CARCINOMA

REACTIONS (7)
  - Cerebrovascular accident [None]
  - Balance disorder [None]
  - Fall [None]
  - Decreased appetite [None]
  - Weight decreased [None]
  - Gait disturbance [None]
  - Nausea [None]
